FAERS Safety Report 12467437 (Version 1)
Quarter: 2016Q2

REPORT INFORMATION
  Report Type: Spontaneous
  Country: US (occurrence: US)
  Receive Date: 20160615
  Receipt Date: 20160615
  Transmission Date: 20160815
  Serious: No
  Sender: FDA-Public Use
  Company Number: US-TEVA-588400USA

PATIENT
  Sex: Female
  Weight: 52.21 kg

DRUGS (1)
  1. CIPROFLOXACIN. [Suspect]
     Active Substance: CIPROFLOXACIN
     Indication: CYSTITIS
     Dosage: 1000 MILLIGRAM DAILY;

REACTIONS (2)
  - Blister [Not Recovered/Not Resolved]
  - Burning sensation [Not Recovered/Not Resolved]
